FAERS Safety Report 5849249-1 (Version None)
Quarter: 2008Q3

REPORT INFORMATION
  Report Type: 
  Country: None (occurrence: None)
  Receive Date: 20080815
  Receipt Date: 20080805
  Transmission Date: 20090109
  Serious: Yes (Hospitalization)
  Sender: FDA-Public Use
  Company Number: 2008BI018051

PATIENT
  Age: 49 Year
  Sex: Female

DRUGS (1)
  1. TYSABRI [Suspect]
     Indication: MULTIPLE SCLEROSIS
     Dosage: 300 MG QM; IV
     Route: 042
     Dates: start: 20061020

REACTIONS (9)
  - BASAL CELL CARCINOMA [None]
  - BLOOD PRESSURE DECREASED [None]
  - CANDIDIASIS [None]
  - CLOSTRIDIAL INFECTION [None]
  - CULTURE STOOL POSITIVE [None]
  - ENTEROCOCCAL INFECTION [None]
  - RENAL FAILURE [None]
  - SPUTUM CULTURE POSITIVE [None]
  - URINARY TRACT INFECTION [None]
